FAERS Safety Report 6297862-2 (Version None)
Quarter: 2009Q3

REPORT INFORMATION
  Report Type: 
  Country: None (occurrence: None)
  Receive Date: 20090805
  Receipt Date: 20090804
  Transmission Date: 20100115
  Serious: Yes (Hospitalization)
  Sender: FDA-Public Use
  Company Number: A0785802A

PATIENT
  Age: 53 Year
  Sex: Female

DRUGS (6)
  1. ALLI [Suspect]
     Indication: DRUG USE FOR UNKNOWN INDICATION
     Route: 048
  2. PROTONIX [Concomitant]
  3. CLARINEX [Concomitant]
  4. LEXAPRO [Concomitant]
  5. JANUVIA [Concomitant]
  6. LIPITOR [Concomitant]

REACTIONS (18)
  - ABDOMINAL DISCOMFORT [None]
  - ABDOMINAL DISTENSION [None]
  - ABDOMINAL PAIN UPPER [None]
  - ALANINE AMINOTRANSFERASE INCREASED [None]
  - ASPARTATE AMINOTRANSFERASE INCREASED [None]
  - BLOOD CHOLESTEROL INCREASED [None]
  - BLOOD TRIGLYCERIDES INCREASED [None]
  - CARDIAC DISORDER [None]
  - DIVERTICULUM INTESTINAL [None]
  - DYSPEPSIA [None]
  - FAT INTOLERANCE [None]
  - FEELING ABNORMAL [None]
  - GALLBLADDER DISORDER [None]
  - LIPASE INCREASED [None]
  - MELAENA [None]
  - PAIN [None]
  - PANCREATIC ENZYMES INCREASED [None]
  - PANCREATITIS [None]
